FAERS Safety Report 18790491 (Version 1)
Quarter: 2021Q1

REPORT INFORMATION
  Report Type: Spontaneous
  Country: CA (occurrence: CA)
  Receive Date: 20210126
  Receipt Date: 20210126
  Transmission Date: 20210419
  Serious: Yes (Life-Threatening, Other)
  Sender: FDA-Public Use
  Company Number: CA-GILEAD-2021-0514410

PATIENT
  Age: 66 Year
  Sex: Male
  Weight: 55 kg

DRUGS (10)
  1. BIKTARVY [Suspect]
     Active Substance: BICTEGRAVIR SODIUM\EMTRICITABINE\TENOFOVIR ALAFENAMIDE FUMARATE
     Indication: HIV INFECTION
     Dosage: 250 MG, QD
     Route: 048
  2. PIFELTRO [Suspect]
     Active Substance: DORAVIRINE
     Indication: HIV INFECTION
     Dosage: 100 MG, QD
     Route: 048
  3. ROSUVASTATIN. [Concomitant]
     Active Substance: ROSUVASTATIN
  4. PANTOPRAZOLE [Concomitant]
     Active Substance: PANTOPRAZOLE
  5. BISOPROLOL [Concomitant]
     Active Substance: BISOPROLOL
  6. FERROUS FUMARATE [Concomitant]
     Active Substance: FERROUS FUMARATE
  7. MAGNESIUM [Concomitant]
     Active Substance: MAGNESIUM
  8. MAGNESIUM OXIDE. [Concomitant]
     Active Substance: MAGNESIUM OXIDE
  9. CLOPIDOGREL [Concomitant]
     Active Substance: CLOPIDOGREL BISULFATE
  10. ASPIRIN (E.C.) [Concomitant]
     Active Substance: ASPIRIN

REACTIONS (12)
  - Insulin resistance [Unknown]
  - Pancreatic injury [Unknown]
  - Dizziness [Unknown]
  - Fatigue [Unknown]
  - Thirst [Unknown]
  - Visual impairment [Unknown]
  - Weight decreased [Unknown]
  - Latent autoimmune diabetes in adults [Unknown]
  - Pollakiuria [Unknown]
  - Penile infection [Unknown]
  - Mucosal infection [Unknown]
  - Type 1 diabetes mellitus [Unknown]
